FAERS Safety Report 22044395 (Version 1)
Quarter: 2023Q1

REPORT INFORMATION
  Report Type: Spontaneous
  Country: US (occurrence: None)
  Receive Date: 20230228
  Receipt Date: 20230228
  Transmission Date: 20230417
  Serious: No
  Sender: FDA-Public Use
  Company Number: 2023A049032

PATIENT
  Age: 81 Year
  Sex: Male

DRUGS (2)
  1. PRILOSEC OTC [Suspect]
     Active Substance: OMEPRAZOLE MAGNESIUM
     Indication: Oesophagitis
     Dosage: UNK, 2 /DAY
     Route: 048
     Dates: end: 20230127
  2. PRILOSEC OTC [Suspect]
     Active Substance: OMEPRAZOLE MAGNESIUM
     Indication: Oesophagitis
     Dosage: UNK, 1 /DAY
     Route: 048
     Dates: end: 20230130

REACTIONS (6)
  - Prescribed overdose [Unknown]
  - Dysphagia [Not Recovered/Not Resolved]
  - Condition aggravated [Not Recovered/Not Resolved]
  - Therapeutic product effect decreased [Unknown]
  - Off label use [Unknown]
  - Incorrect product administration duration [Unknown]
